FAERS Safety Report 5187835-5 (Version None)
Quarter: 2006Q4

REPORT INFORMATION
  Report Type: 
  Country: None (occurrence: None)
  Receive Date: 20061221
  Receipt Date: 20061211
  Transmission Date: 20070319
  Serious: Yes (Hospitalization)
  Sender: FDA-Public Use
  Company Number: FR-ELI_LILLY_AND_COMPANY-FR200612001959

PATIENT
  Age: 74 Year
  Sex: Female

DRUGS (6)
  1. FORTEO [Suspect]
     Indication: OSTEOPOROSIS
     Dosage: 20 UG, DAILY (1/D)
     Route: 058
     Dates: start: 20060924
  2. CORTISONE ACETATE [Concomitant]
  3. METHOTREXATE [Concomitant]
  4. TOCO [Concomitant]
  5. POTASSIUM ACETATE [Concomitant]
  6. CACIT D3 [Concomitant]

REACTIONS (5)
  - ABDOMINAL STRANGULATED HERNIA [None]
  - ASTHENIA [None]
  - BACK PAIN [None]
  - MUSCULAR WEAKNESS [None]
  - PAIN IN EXTREMITY [None]
